FAERS Safety Report 8603753 (Version 3)
Quarter: 2013Q4

REPORT INFORMATION
  Report Type: Spontaneous
  Country: US (occurrence: US)
  Receive Date: 20120607
  Receipt Date: 20131209
  Transmission Date: 20140711
  Serious: Yes (Other)
  Sender: FDA-Public Use
  Company Number: US-US-EMD SERONO, INC.-7026773

PATIENT
  Age: 64 Year
  Sex: Female

DRUGS (6)
  1. REBIF [Suspect]
     Indication: RELAPSING-REMITTING MULTIPLE SCLEROSIS
     Route: 058
     Dates: start: 20100620
  2. TEGRETOL [Concomitant]
     Indication: EPILEPSY
     Route: 048
     Dates: start: 1991
  3. TEGRETOL [Concomitant]
     Indication: CONVULSION
     Route: 048
  4. GABAPENTIN [Concomitant]
     Indication: POLYNEUROPATHY
     Dates: start: 201006
  5. GABAPENTIN [Concomitant]
     Indication: CONVULSION
  6. BACLOFEN [Concomitant]
     Indication: MUSCLE SPASTICITY
     Dates: start: 200507

REACTIONS (5)
  - Grand mal convulsion [Recovered/Resolved]
  - Bursitis [Unknown]
  - Hepatic enzyme abnormal [Unknown]
  - Injection site pain [Unknown]
  - Injection site erythema [Unknown]
